FAERS Safety Report 16592173 (Version 1)
Quarter: 2019Q3

REPORT INFORMATION
  Report Type: Spontaneous
  Country: US (occurrence: US)
  Receive Date: 20190718
  Receipt Date: 20190718
  Transmission Date: 20191004
  Serious: Yes (Life-Threatening, Other)
  Sender: FDA-Public Use
  Company Number: US-PFIZER INC-2019306458

PATIENT
  Age: 31 Year
  Sex: Female

DRUGS (6)
  1. XELJANZ [Suspect]
     Active Substance: TOFACITINIB CITRATE
     Dosage: UNK
     Dates: start: 20190528
  2. HUMIRA [Suspect]
     Active Substance: ADALIMUMAB
     Dosage: 1 IN 2 WK
     Route: 058
     Dates: start: 201812
  3. SEROQUEL [Interacting]
     Active Substance: QUETIAPINE FUMARATE
     Dosage: UNK
  4. HUMIRA [Suspect]
     Active Substance: ADALIMUMAB
     Indication: PSORIATIC ARTHROPATHY
     Dosage: 1 IN 2 WK
     Route: 058
     Dates: start: 201801
  5. TALTZ [Interacting]
     Active Substance: IXEKIZUMAB
     Dosage: UNK
  6. HUMIRA [Suspect]
     Active Substance: ADALIMUMAB
     Dosage: 1 IN 2 WK
     Route: 058
     Dates: end: 20190206

REACTIONS (12)
  - Restlessness [Unknown]
  - Decreased interest [Unknown]
  - Psoriasis [Unknown]
  - Drug interaction [Unknown]
  - Spinal pain [Unknown]
  - Mental impairment [Unknown]
  - Drug ineffective [Unknown]
  - Eczema [Unknown]
  - Depression [Unknown]
  - Suicidal ideation [Unknown]
  - Fatigue [Unknown]
  - Irritability [Unknown]
